FAERS Safety Report 10269761 (Version 1)
Quarter: 2014Q2

REPORT INFORMATION
  Report Type: Spontaneous
  Country: US (occurrence: None)
  Receive Date: 20140627
  Receipt Date: 20140627
  Transmission Date: 20141212
  Serious: Yes (Disabling)
  Sender: FDA-Public Use
  Company Number: None

PATIENT
  Age: 52 Year
  Sex: Female
  Weight: 65.77 kg

DRUGS (1)
  1. BRINTELLIX 10 MG [Suspect]
     Indication: MAJOR DEPRESSION
     Dosage: 1 TABLET, ONCE DAILY, TAKEN BY MOUTH
     Route: 048

REACTIONS (5)
  - Abdominal pain [None]
  - Gastric ulcer [None]
  - Hepatomegaly [None]
  - Hepatic enzyme increased [None]
  - Malaise [None]
